FAERS Safety Report 9648929 (Version 2)
Quarter: 2014Q1

REPORT INFORMATION
  Report Type: Spontaneous
  Country: US (occurrence: None)
  Receive Date: 20131018
  Receipt Date: 20140122
  Transmission Date: 20141002
  Serious: No
  Sender: FDA-Public Use
  Company Number: AEGR000113

PATIENT
  Age: 71 Year
  Sex: Female
  Weight: 54.4 kg

DRUGS (10)
  1. JUXTAPID [Suspect]
     Indication: TYPE IIA HYPERLIPIDAEMIA
     Route: 048
     Dates: start: 20130725, end: 2013
  2. SYNTHROID (LEVOTHYROXINE SODIUM) [Concomitant]
  3. FUROSEMIDE [Concomitant]
  4. POTASSIUM (POTASSIUM CHLORIDE) [Concomitant]
  5. MELOXICAM [Concomitant]
  6. VOLTAREN (DICLOFENAC SODIUM) [Concomitant]
  7. VITAMIN B12 (CYANOCOBALAMIN) [Concomitant]
  8. CUCURAMIN (BOSWELLIA SERRATA, CURCUMA LONGA, DI-PHENYLALANINE, NATTOKINASE) [Concomitant]
  9. GINKGO (GINKGO BILOBA) [Concomitant]
  10. CENTRUM SILVER (ASCORBIC ACID, CALCIUM, MINERALS NOS, RETINOL, TOCOPHERYL ACETATE, VITAMIN B NOS, VITAMINS NOS, ZINC) [Concomitant]

REACTIONS (5)
  - Rosacea [None]
  - Ocular rosacea [None]
  - Oral herpes [None]
  - Fatigue [None]
  - Influenza like illness [None]
